FAERS Safety Report 10533592 (Version 2)
Quarter: 2015Q1

REPORT INFORMATION
  Report Type: Spontaneous
  Country: CA (occurrence: CA)
  Receive Date: 20141022
  Receipt Date: 20150121
  Transmission Date: 20150720
  Serious: Yes (Life-Threatening, Hospitalization)
  Sender: FDA-Public Use
  Company Number: CA-JNJFOC-20141011345

PATIENT
  Age: 9 Year
  Sex: Male
  Weight: 29.03 kg

DRUGS (13)
  1. CONCERTA [Suspect]
     Active Substance: METHYLPHENIDATE HYDROCHLORIDE
     Indication: RHINORRHOEA
     Dosage: EXTENDED RELEASE
     Route: 065
     Dates: start: 20130119
  2. CONCERTA [Suspect]
     Active Substance: METHYLPHENIDATE HYDROCHLORIDE
     Indication: DYSPHAGIA
     Dosage: EXTENDED RELEASE
     Route: 065
     Dates: start: 20130119
  3. TYLENOL [Suspect]
     Active Substance: ACETAMINOPHEN
     Indication: OROPHARYNGEAL PAIN
     Route: 048
     Dates: start: 20130325
  4. CONCERTA [Suspect]
     Active Substance: METHYLPHENIDATE HYDROCHLORIDE
     Indication: OROPHARYNGEAL PAIN
     Dosage: EXTENDED RELEASE
     Route: 065
     Dates: start: 20130119
  5. TYLENOL [Suspect]
     Active Substance: ACETAMINOPHEN
     Indication: DYSPHAGIA
     Route: 048
     Dates: start: 20130325
  6. CONCERTA [Suspect]
     Active Substance: METHYLPHENIDATE HYDROCHLORIDE
     Indication: RHINORRHOEA
     Route: 065
     Dates: start: 201311
  7. CONCERTA [Suspect]
     Active Substance: METHYLPHENIDATE HYDROCHLORIDE
     Indication: DYSPHAGIA
     Route: 065
     Dates: start: 201311
  8. TYLENOL [Suspect]
     Active Substance: ACETAMINOPHEN
     Indication: RHINORRHOEA
     Route: 048
     Dates: start: 20130325
  9. STRATTERA [Suspect]
     Active Substance: ATOMOXETINE HYDROCHLORIDE
     Indication: ATTENTION DEFICIT/HYPERACTIVITY DISORDER
     Dosage: LOWER DOSE (UNSPECIFIED)
     Route: 048
     Dates: start: 20100322
  10. BENYLIN FOR CHILDREN ALL-IN-ONE COLD AND FEVER [Suspect]
     Active Substance: ACETAMINOPHEN\CHLORPHENIRAMINE MALEATE\DEXTROMETHORPHAN HYDROBROMIDE\PSEUDOEPHEDRINE HYDROCHLORIDE
     Indication: PYREXIA
     Dosage: TOTAL
     Route: 048
     Dates: start: 20130325, end: 20130325
  11. BENYLIN FOR CHILDREN ALL-IN-ONE COLD AND FEVER [Suspect]
     Active Substance: ACETAMINOPHEN\CHLORPHENIRAMINE MALEATE\DEXTROMETHORPHAN HYDROBROMIDE\PSEUDOEPHEDRINE HYDROCHLORIDE
     Indication: NASOPHARYNGITIS
     Dosage: TOTAL
     Route: 048
     Dates: start: 20130325, end: 20130325
  12. CONCERTA [Suspect]
     Active Substance: METHYLPHENIDATE HYDROCHLORIDE
     Indication: OROPHARYNGEAL PAIN
     Route: 065
     Dates: start: 201311
  13. STRATTERA [Suspect]
     Active Substance: ATOMOXETINE HYDROCHLORIDE
     Indication: ATTENTION DEFICIT/HYPERACTIVITY DISORDER
     Dosage: 40 MG
     Route: 048
     Dates: start: 20101012, end: 20130331

REACTIONS (8)
  - Blood pressure decreased [Unknown]
  - Product use issue [Unknown]
  - Drug ineffective [Unknown]
  - Oropharyngeal pain [Unknown]
  - Seizure [Unknown]
  - Tremor [Unknown]
  - Ear infection [Unknown]
  - Hunger [Unknown]

NARRATIVE: CASE EVENT DATE: 20130325
